FAERS Safety Report 5982589-4 (Version None)
Quarter: 2008Q4

REPORT INFORMATION
  Report Type: 
  Country: None (occurrence: None)
  Receive Date: 20081208
  Receipt Date: 20081201
  Transmission Date: 20090506
  Serious: Yes (Other)
  Sender: FDA-Public Use
  Company Number: PHEH2008US08223

PATIENT
  Sex: Female
  Weight: 70.748 kg

DRUGS (5)
  1. RECLAST [Suspect]
     Indication: SENILE OSTEOPOROSIS
     Dosage: 5 MG, QYR
     Dates: start: 20080826
  2. CALCIUM [Concomitant]
     Dosage: UNK
  3. VITA-B [Concomitant]
     Dosage: UNK
  4. ESTRACE [Concomitant]
     Dosage: UNK
  5. LEVOTHYROXINE SODIUM [Concomitant]
     Dosage: 100 UG, QD
     Route: 048

REACTIONS (7)
  - BLINDNESS [None]
  - BONE PAIN [None]
  - EYE PAIN [None]
  - INFLUENZA LIKE ILLNESS [None]
  - IRIDOCYCLITIS [None]
  - OCULAR HYPERAEMIA [None]
  - VISION BLURRED [None]
